FAERS Safety Report 12494712 (Version 1)
Quarter: 2016Q2

REPORT INFORMATION
  Report Type: Report from Study
  Country: US (occurrence: US)
  Receive Date: 20160624
  Receipt Date: 20160624
  Transmission Date: 20160815
  Serious: Yes (Other)
  Sender: FDA-Public Use
  Company Number: US-AMGEN-USASL2016069885

PATIENT
  Age: 66 Year
  Sex: Female
  Weight: 75.28 kg

DRUGS (2)
  1. REPATHA [Suspect]
     Active Substance: EVOLOCUMAB
     Dosage: UNK
     Route: 058
  2. REPATHA [Suspect]
     Active Substance: EVOLOCUMAB
     Indication: HYPERCHOLESTEROLAEMIA
     Dosage: 140 MG, Q2WK
     Route: 058
     Dates: start: 20151028, end: 20160527

REACTIONS (9)
  - Ultrasound scan abnormal [Unknown]
  - Pain in extremity [Recovered/Resolved]
  - Myalgia [Unknown]
  - Muscle spasms [Recovering/Resolving]
  - Arthralgia [Unknown]
  - Drug intolerance [Recovered/Resolved]
  - Tenderness [Unknown]
  - Limb discomfort [Unknown]
  - Insomnia [Unknown]

NARRATIVE: CASE EVENT DATE: 201512
